FAERS Safety Report 23028540 (Version 1)
Quarter: 2023Q4

REPORT INFORMATION
  Report Type: Spontaneous
  Country: US (occurrence: US)
  Receive Date: 20231004
  Receipt Date: 20231004
  Transmission Date: 20240110
  Serious: Yes (Other)
  Sender: FDA-Public Use
  Company Number: US-ABBVIE-5431778

PATIENT
  Sex: Female

DRUGS (1)
  1. IMBRUVICA [Suspect]
     Active Substance: IBRUTINIB
     Indication: Product used for unknown indication
     Dosage: TAKE ONE TABLET OF 420 MILLIGRAM AND ONE OF 140 MILLIGRAM BY MOUTH ONCE DAILY, FOR A TOTAL DOSE O...
     Route: 048

REACTIONS (1)
  - Spinal operation [Unknown]
